FAERS Safety Report 6251411-3 (Version None)
Quarter: 2009Q2

REPORT INFORMATION
  Report Type: 
  Country: None (occurrence: None)
  Receive Date: 20090630
  Receipt Date: 20090623
  Transmission Date: 20091009
  Serious: Yes (Other)
  Sender: FDA-Public Use
  Company Number: US-ROCHE-640071

PATIENT
  Age: 48 Year
  Sex: Male

DRUGS (1)
  1. FUZEON [Suspect]
     Route: 058
     Dates: start: 20051001

REACTIONS (5)
  - INJECTION SITE ERYTHEMA [None]
  - INJECTION SITE INDURATION [None]
  - INJECTION SITE SWELLING [None]
  - OSTEONECROSIS [None]
  - PAIN IN EXTREMITY [None]
